FAERS Safety Report 8024669-8 (Version None)
Quarter: 2012Q1

REPORT INFORMATION
  Report Type: 
  Country: None (occurrence: None)
  Receive Date: 20120103
  Receipt Date: 20111220
  Transmission Date: 20120608
  Serious: Yes (Hospitalization)
  Sender: FDA-Public Use
  Company Number: WAES 1112USA00378

PATIENT
  Age: 59 Year
  Sex: Female

DRUGS (17)
  1. LEFLUNOMIDE [Concomitant]
  2. ACETAMINOPHEN [Concomitant]
  3. FOLIC ACID [Concomitant]
  4. DURIDE [Concomitant]
  5. CANDESARTAN CILEXETIL [Concomitant]
  6. NORTRIPTYLINE HCL [Concomitant]
  7. OMEPRAZOLE [Concomitant]
  8. SITAGLIPTIN PHOSPHATE [Suspect]
     Indication: TYPE 2 DIABETES MELLITUS
     Dosage: PO
     Route: 048
     Dates: start: 20110322, end: 20111011
  9. ASPIRIN [Concomitant]
  10. VENLAFAXINE HCL [Concomitant]
  11. ATENOLOL [Concomitant]
  12. CODEINE [Concomitant]
  13. SIMVASTATIN [Concomitant]
  14. PENMIX 10 [Concomitant]
  15. CARDIZEM [Concomitant]
  16. METHOTREXATE [Concomitant]
  17. ZOPICLONE [Concomitant]

REACTIONS (3)
  - PULMONARY FIBROSIS [None]
  - LOWER RESPIRATORY TRACT INFECTION [None]
  - PULMONARY ARTERIAL HYPERTENSION [None]
